FAERS Safety Report 5319719-3 (Version None)
Quarter: 2007Q2

REPORT INFORMATION
  Report Type: 
  Country: None (occurrence: None)
  Receive Date: 20070502
  Receipt Date: 20070420
  Transmission Date: 20071010
  Serious: Yes (Hospitalization)
  Sender: FDA-Public Use
  Company Number: 16376

PATIENT
  Age: 73 Year
  Sex: Female

DRUGS (7)
  1. METHYLENE BLUE [Suspect]
     Indication: PARATHYROIDECTOMY
     Dosage: 5 MG/KG FREQ IV
     Route: 042
     Dates: start: 20030708
  2. DOLASETRON [Concomitant]
  3. FENTANYL [Concomitant]
  4. MIDAZOLAM HCL [Concomitant]
  5. MIVACURIUM [Concomitant]
  6. PROPOFOL [Concomitant]
  7. SEVOFLURANE [Concomitant]

REACTIONS (2)
  - ENCEPHALOPATHY [None]
  - POST PROCEDURAL COMPLICATION [None]
